FAERS Safety Report 25295729 (Version 1)
Quarter: 2025Q2

REPORT INFORMATION
  Report Type: Spontaneous
  Country: US (occurrence: US)
  Receive Date: 20250511
  Receipt Date: 20250511
  Transmission Date: 20250716
  Serious: No
  Sender: UCB
  Company Number: US-UCBSA-2024024110

PATIENT
  Age: 31 Year
  Sex: Female

DRUGS (1)
  1. CIMZIA [Suspect]
     Active Substance: CERTOLIZUMAB PEGOL
     Indication: Ankylosing spondylitis
     Dosage: 400 MILLIGRAM, EV 2 WEEKS(QOW), AT WEEK 0, 2 AND 4 IN THE ABDOMEN OR THIGH FOR 3 DOSES
     Route: 058
     Dates: start: 202405

REACTIONS (7)
  - Feeling abnormal [Unknown]
  - Injection site swelling [Unknown]
  - Injection site pain [Unknown]
  - Injection site rash [Unknown]
  - Injection site urticaria [Unknown]
  - Injection site warmth [Unknown]
  - Injection site erythema [Unknown]

NARRATIVE: CASE EVENT DATE: 20240501
